FAERS Safety Report 17563843 (Version 6)
Quarter: 2022Q2

REPORT INFORMATION
  Report Type: Spontaneous
  Country: US (occurrence: US)
  Receive Date: 20200319
  Receipt Date: 20220530
  Transmission Date: 20220721
  Serious: Yes (Hospitalization, Other)
  Sender: FDA-Public Use
  Company Number: None

PATIENT
  Age: 6 Year
  Sex: Female
  Weight: 26.3 kg

DRUGS (26)
  1. KYMRIAH [Suspect]
     Active Substance: TISAGENLECLEUCEL
     Indication: Acute lymphocytic leukaemia
     Dosage: ONCE/SINGLE (2.4X 10E6 CELLS/KG)
     Route: 042
     Dates: start: 20190114
  2. CYCLOPHOSPHAMIDE [Concomitant]
     Active Substance: CYCLOPHOSPHAMIDE
     Indication: Chemotherapy
     Dosage: UNK
     Route: 065
  3. FLUDARABINE [Concomitant]
     Active Substance: FLUDARABINE PHOSPHATE
     Indication: Chemotherapy
     Dosage: UNK
     Route: 065
  4. ZYLOPRIM [Concomitant]
     Active Substance: ALLOPURINOL
     Indication: Product used for unknown indication
     Dosage: 88 MG, TID
     Route: 065
     Dates: start: 20190120, end: 20190122
  5. KEPPRA [Concomitant]
     Active Substance: LEVETIRACETAM
     Indication: Product used for unknown indication
     Dosage: 260 MG, BID
     Route: 065
     Dates: start: 20190120, end: 20190122
  6. HEPARIN [Concomitant]
     Active Substance: HEPARIN SODIUM
     Indication: Product used for unknown indication
     Dosage: UNK (10 UNITS/ML, PRN)
     Route: 065
     Dates: start: 20190120, end: 20190120
  7. HEPARIN [Concomitant]
     Active Substance: HEPARIN SODIUM
     Dosage: UNK (  50 UNITS/ML, PRN)
     Route: 065
     Dates: start: 20190120, end: 20190122
  8. HEPARIN [Concomitant]
     Active Substance: HEPARIN SODIUM
     Dosage: UNK (100 UNITS/ML, PRN)
     Route: 065
     Dates: start: 20190120, end: 20190122
  9. ROCEPHIN [Concomitant]
     Active Substance: CEFTRIAXONE SODIUM
     Indication: Product used for unknown indication
     Dosage: 40 MG/ML, ONCE/SINGLE
     Route: 065
     Dates: start: 20190119, end: 20190119
  10. FURADANTIN [Concomitant]
     Active Substance: NITROFURANTOIN
     Indication: Product used for unknown indication
     Dosage: 52 MG, QD
     Route: 065
     Dates: start: 20190120, end: 20190120
  11. FURADANTIN [Concomitant]
     Active Substance: NITROFURANTOIN
     Dosage: 52 MG, QD
     Route: 065
     Dates: start: 20190122, end: 20190122
  12. SODIUM CHLORIDE [Concomitant]
     Active Substance: SODIUM CHLORIDE
     Indication: Product used for unknown indication
     Dosage: 0.9 %, ONCE/SINGLE
     Route: 042
     Dates: start: 20190121, end: 20190121
  13. SODIUM CHLORIDE [Concomitant]
     Active Substance: SODIUM CHLORIDE
     Dosage: 0.9 %, ONCE/SINGLE
     Route: 042
     Dates: start: 20190120, end: 20190122
  14. CATHFLO ACTIVASE [Concomitant]
     Active Substance: ALTEPLASE
     Indication: Product used for unknown indication
     Dosage: 1 MG/ML, ONCE/SINGLE
     Route: 065
     Dates: start: 20190121, end: 20190121
  15. PAROEX [Concomitant]
     Active Substance: CHLORHEXIDINE GLUCONATE
     Indication: Product used for unknown indication
     Dosage: 10 MG, BID
     Route: 065
     Dates: start: 20190120, end: 20190120
  16. ONDANSETRON [Concomitant]
     Active Substance: ONDANSETRON
     Indication: Product used for unknown indication
     Dosage: 4 MG, Q8H (PRN)
     Route: 065
     Dates: start: 20190120, end: 20190120
  17. ONDANSETRON [Concomitant]
     Active Substance: ONDANSETRON
     Dosage: UNK UNK, Q8H (2 MG/ML, Q8H (PRN))
     Route: 065
     Dates: start: 20190120, end: 20190120
  18. ONDANSETRON [Concomitant]
     Active Substance: ONDANSETRON
     Dosage: 4 MG, TID(PRN)
     Route: 065
  19. LMX [Concomitant]
     Indication: Product used for unknown indication
     Dosage: 1 DF, PRN
     Route: 065
     Dates: start: 20190120, end: 20190122
  20. MAXIPIME [Concomitant]
     Active Substance: CEFEPIME HYDROCHLORIDE
     Indication: Product used for unknown indication
     Dosage: 1335.2 MG, Q8H
     Route: 065
     Dates: start: 20190120, end: 20190120
  21. DIFLUCAN [Concomitant]
     Active Substance: FLUCONAZOLE
     Indication: Product used for unknown indication
     Dosage: 140 MG, QD
     Route: 065
     Dates: start: 20190120, end: 20190122
  22. NEURONTIN [Concomitant]
     Active Substance: GABAPENTIN
     Indication: Product used for unknown indication
     Dosage: 300 MG, TID
     Route: 065
     Dates: start: 20190120, end: 20190122
  23. BENADRYL [Concomitant]
     Active Substance: DIPHENHYDRAMINE HYDROCHLORIDE
     Indication: Product used for unknown indication
     Dosage: 12.5 MG, Q6H (PRN)
     Route: 065
     Dates: start: 20190120, end: 20190122
  24. CLARITIN [Concomitant]
     Active Substance: LORATADINE
     Indication: Product used for unknown indication
     Dosage: 7.5 MG, QD
     Route: 065
     Dates: start: 20190120, end: 20190122
  25. MIRALAX [Concomitant]
     Active Substance: POLYETHYLENE GLYCOL 3350
     Indication: Product used for unknown indication
     Dosage: 8.5 G, QD
     Route: 065
     Dates: start: 20190120, end: 20190122
  26. SEPTRA [Concomitant]
     Active Substance: SULFAMETHOXAZOLE\TRIMETHOPRIM
     Indication: Product used for unknown indication
     Dosage: 68 MG, BID
     Route: 065
     Dates: start: 20190120, end: 20190122

REACTIONS (17)
  - Cytokine release syndrome [Recovered/Resolved]
  - Pyrexia [Recovered/Resolved]
  - Headache [Recovered/Resolved]
  - Malaise [Recovered/Resolved]
  - Nausea [Unknown]
  - Fatigue [Recovered/Resolved]
  - Neutropenia [Unknown]
  - Leukopenia [Unknown]
  - Platelet count decreased [Unknown]
  - White blood cell count decreased [Unknown]
  - Neutrophil count decreased [Unknown]
  - Lymphocyte count decreased [Unknown]
  - Immature granulocyte count increased [Unknown]
  - Haematocrit decreased [Unknown]
  - Red blood cell count decreased [Unknown]
  - Immunoglobulins decreased [Unknown]
  - Haemoglobin decreased [Unknown]

NARRATIVE: CASE EVENT DATE: 20190114
